FAERS Safety Report 8878995 (Version 1)
Quarter: 2012Q4

REPORT INFORMATION
  Report Type: Report from Study
  Country: JP (occurrence: JP)
  Receive Date: 20121026
  Receipt Date: 20121026
  Transmission Date: 20130627
  Serious: Yes (Life-Threatening)
  Sender: FDA-Public Use
  Company Number: JP-EISAI INC-E2020-11458-CLI-JP

PATIENT
  Age: 78 Year
  Sex: Female

DRUGS (8)
  1. ARICEPT [Suspect]
     Indication: ALZHEIMER^S DISEASE
     Route: 048
     Dates: start: 20100826, end: 20110102
  2. BAYLOTENSIN [Concomitant]
     Route: 048
  3. CRESTOR [Concomitant]
     Route: 048
     Dates: start: 20100428
  4. GANATON [Concomitant]
     Indication: PROPHYLAXIS
     Route: 048
  5. ZYRTEC [Concomitant]
     Route: 048
  6. HYPEN [Concomitant]
     Route: 048
  7. GASLON N [Concomitant]
     Indication: PROPHYLAXIS
     Route: 048
  8. SHAKUYAKUKANZOTO [Concomitant]
     Route: 048

REACTIONS (3)
  - Pneumonia aspiration [Recovered/Resolved]
  - Vomiting [Recovered/Resolved]
  - Nausea [Recovered/Resolved]
